FAERS Safety Report 12404887 (Version 3)
Quarter: 2016Q3

REPORT INFORMATION
  Report Type: Report from Study
  Country: CO (occurrence: CO)
  Receive Date: 20160525
  Receipt Date: 20160712
  Transmission Date: 20161109
  Serious: Yes (Hospitalization, Other)
  Sender: FDA-Public Use
  Company Number: CO-JNJFOC-20160521087

PATIENT
  Age: 71 Year
  Sex: Male
  Weight: 70 kg

DRUGS (3)
  1. SIMPONI [Suspect]
     Active Substance: GOLIMUMAB
     Indication: ANKYLOSING SPONDYLITIS
     Route: 058
     Dates: start: 20131130
  2. SIMPONI [Suspect]
     Active Substance: GOLIMUMAB
     Indication: ANKYLOSING SPONDYLITIS
     Route: 058
     Dates: start: 20160626
  3. MORPHINE [Suspect]
     Active Substance: MORPHINE
     Indication: SPINAL PAIN
     Route: 065
     Dates: start: 20160704

REACTIONS (7)
  - Oral candidiasis [Recovering/Resolving]
  - Back pain [Unknown]
  - Spinal pain [Recovering/Resolving]
  - Mouth injury [Unknown]
  - Hypoaesthesia oral [Unknown]
  - Musculoskeletal stiffness [Unknown]
  - Osteomyelitis [Recovering/Resolving]

NARRATIVE: CASE EVENT DATE: 20160505
